FAERS Safety Report 25717377 (Version 1)
Quarter: 2025Q3

REPORT INFORMATION
  Report Type: Report from Study
  Country: EU (occurrence: EU)
  Receive Date: 20250822
  Receipt Date: 20250822
  Transmission Date: 20251020
  Serious: Yes (Hospitalization)
  Sender: SANDOZ
  Company Number: EU-JAZZ PHARMACEUTICALS-2023-NL-024249

PATIENT
  Age: 64 Year
  Sex: Female
  Weight: 49.5 kg

DRUGS (4)
  1. CAPECITABINE [Suspect]
     Active Substance: CAPECITABINE
     Dosage: 1100 MG, BID, CYCLE 2, DAY 1
     Route: 048
     Dates: start: 20231201
  2. CAPECITABINE [Suspect]
     Active Substance: CAPECITABINE
     Indication: Oesophageal adenocarcinoma
     Dosage: 1500 MG, BID
     Route: 048
     Dates: start: 20231127, end: 20231201
  3. OXALIPLATIN [Suspect]
     Active Substance: OXALIPLATIN
     Indication: Oesophageal adenocarcinoma
     Dosage: 196.74 MG, Q3W
     Route: 042
     Dates: start: 20231106
  4. ZANIDATAMAB [Suspect]
     Active Substance: ZANIDATAMAB
     Indication: Oesophageal adenocarcinoma
     Dosage: 1000 MG, Q3W, CYCLE 2, DAY 1
     Route: 042
     Dates: start: 20231127

REACTIONS (1)
  - Nausea [Recovered/Resolved]

NARRATIVE: CASE EVENT DATE: 20231201
